FAERS Safety Report 8926860 (Version 1)
Quarter: 2012Q4

REPORT INFORMATION
  Report Type: 
  Country: SE (occurrence: SE)
  Receive Date: 20121127
  Receipt Date: 20121127
  Transmission Date: 20130627
  Serious: Yes (Hospitalization, Other)
  Sender: FDA-Public Use
  Company Number: SE-ELI_LILLY_AND_COMPANY-SE201211003936

PATIENT
  Age: 38 Year
  Sex: Female

DRUGS (3)
  1. CYMBALTA [Suspect]
     Indication: DEPRESSION
     Dosage: 150 mg, qd
     Route: 048
     Dates: start: 201203, end: 20121029
  2. VOXRA [Concomitant]
     Dosage: UNK
     Dates: start: 20121106
  3. EFEXOR [Concomitant]
     Indication: DEPRESSION
     Dosage: 150 mg, UNK

REACTIONS (5)
  - Malaise [Unknown]
  - Hypertension [Recovering/Resolving]
  - Liver function test abnormal [Unknown]
  - Muscle contractions involuntary [Unknown]
  - Prescribed overdose [Unknown]
